FAERS Safety Report 7439821-X (Version None)
Quarter: 2011Q2

REPORT INFORMATION
  Report Type: 
  Country: None (occurrence: None)
  Receive Date: 20110427
  Receipt Date: 20110421
  Transmission Date: 20111010
  Serious: Yes (Death)
  Sender: FDA-Public Use
  Company Number: JP-EISAI INC-E2090-01563-SPO-JP

PATIENT
  Sex: Male

DRUGS (6)
  1. AMLODIN [Concomitant]
     Dates: end: 20110330
  2. EXCEGRAN [Suspect]
     Dosage: 200 MG
     Route: 048
     Dates: start: 20110316, end: 20110330
  3. GANATON [Concomitant]
     Route: 048
     Dates: end: 20110330
  4. NORVASC [Concomitant]
     Indication: HYPERTENSION
     Route: 048
  5. DEPAKENE [Concomitant]
     Dosage: UNKNOWN
     Route: 048
     Dates: start: 20110331
  6. ASPIRIN [Concomitant]
     Indication: CEREBRAL INFARCTION
     Route: 048
     Dates: end: 20110330

REACTIONS (3)
  - PLATELET COUNT DECREASED [None]
  - GRANULOCYTE COUNT DECREASED [None]
  - RHABDOMYOLYSIS [None]
